FAERS Safety Report 14314818 (Version 3)
Quarter: 2024Q1

REPORT INFORMATION
  Report Type: Spontaneous
  Country: DE (occurrence: DE)
  Receive Date: 20171221
  Receipt Date: 20240328
  Transmission Date: 20240410
  Serious: Yes (Other)
  Sender: FDA-Public Use
  Company Number: DE-OTSUKA-2016_002655

PATIENT
  Sex: Female
  Weight: 2.57 kg

DRUGS (6)
  1. FLUOXETINE HYDROCHLORIDE [Suspect]
     Active Substance: FLUOXETINE HYDROCHLORIDE
     Indication: Foetal exposure during pregnancy
     Dosage: UNK, UNKNOWN
     Route: 064
  2. FLUOXETINE HYDROCHLORIDE [Suspect]
     Active Substance: FLUOXETINE HYDROCHLORIDE
     Indication: Foetal exposure during pregnancy
     Dosage: UNK, UNKNOWN
     Route: 064
  3. VALPROATE [Suspect]
     Active Substance: VALPROIC ACID
     Indication: Foetal exposure during pregnancy
     Dosage: UNK UNK, UNKNOWN
     Route: 064
  4. VALPROATE [Suspect]
     Active Substance: VALPROIC ACID
     Indication: Foetal exposure during pregnancy
     Dosage: UNK UNK, UNKNOWN
     Route: 064
  5. ABILIFY [Suspect]
     Active Substance: ARIPIPRAZOLE
     Indication: Foetal exposure during pregnancy
     Dosage: UNK UNK, UNKNOWN
     Route: 064
  6. ABILIFY [Suspect]
     Active Substance: ARIPIPRAZOLE
     Indication: Foetal exposure during pregnancy
     Dosage: UNK UNK, UNKNOWN
     Route: 064

REACTIONS (2)
  - Foetal exposure during pregnancy [Recovered/Resolved]
  - Breech presentation [Unknown]

NARRATIVE: CASE EVENT DATE: 20091020
